FAERS Safety Report 23320951 (Version 1)
Quarter: 2023Q4

REPORT INFORMATION
  Report Type: Spontaneous
  Country: CA (occurrence: CA)
  Receive Date: 20231220
  Receipt Date: 20231220
  Transmission Date: 20240110
  Serious: Yes (Hospitalization)
  Sender: FDA-Public Use
  Company Number: CA-FreseniusKabi-FK202320448

PATIENT
  Age: 65 Year
  Sex: Female

DRUGS (1)
  1. IDACIO [Suspect]
     Active Substance: ADALIMUMAB-AACF
     Indication: Rheumatoid arthritis
     Dosage: ROUTE OF ADMIN.- SUBCUTANEOUS?FORM OF ADMIN.- SOLUTION

REACTIONS (5)
  - Concussion [Not Recovered/Not Resolved]
  - Dehydration [Not Recovered/Not Resolved]
  - Device malfunction [Not Recovered/Not Resolved]
  - Foot fracture [Not Recovered/Not Resolved]
  - Renal failure [Not Recovered/Not Resolved]
